FAERS Safety Report 7250473-4 (Version None)
Quarter: 2011Q1

REPORT INFORMATION
  Report Type: 
  Country: None (occurrence: None)
  Receive Date: 20110121
  Receipt Date: 20110121
  Transmission Date: 20110831
  Serious: Yes (Hospitalization)
  Sender: FDA-Public Use
  Company Number: None

PATIENT
  Age: 63 Year
  Sex: Female
  Weight: 77 kg

DRUGS (2)
  1. DASATIMIB [Suspect]
     Indication: METASTATIC NEOPLASM
     Dosage: 100 MG DAILY PO
     Route: 048
     Dates: start: 20101027, end: 20110118
  2. IXABEPILONE 45 MG VIAL BMSO [Suspect]
     Indication: METASTATIC NEOPLASM
     Dosage: 40 MG/M2 Q 21 DAYS IV
     Route: 042
     Dates: start: 20101027, end: 20101229

REACTIONS (13)
  - PYREXIA [None]
  - DIARRHOEA [None]
  - INFECTION [None]
  - WHITE BLOOD CELLS URINE POSITIVE [None]
  - URINARY TRACT INFECTION [None]
  - VOMITING [None]
  - BLOOD CREATININE INCREASED [None]
  - FATIGUE [None]
  - NAUSEA [None]
  - HYPOVOLAEMIA [None]
  - WHITE BLOOD CELL COUNT INCREASED [None]
  - BACTERIAL TEST POSITIVE [None]
  - DYSURIA [None]
